FAERS Safety Report 8574119-8 (Version None)
Quarter: 2012Q3

REPORT INFORMATION
  Report Type: 
  Country: None (occurrence: None)
  Receive Date: 20120806
  Receipt Date: 20120802
  Transmission Date: 20120928
  Serious: Yes (Life-Threatening, Hospitalization, Other)
  Sender: FDA-Public Use
  Company Number: PHHY2012BR067415

PATIENT
  Age: 88 Year
  Sex: Female

DRUGS (2)
  1. FORMOTEROL FUMARATE [Suspect]
     Indication: DYSPNOEA
     Dosage: BID, ONE AT 9 AM AND ONE AT 9 PM
  2. FORMOTEROL FUMARATE [Suspect]
     Indication: LUNG DISORDER

REACTIONS (5)
  - APPARENT DEATH [None]
  - DYSPNOEA [None]
  - NASOPHARYNGITIS [None]
  - COUGH [None]
  - ABASIA [None]
